FAERS Safety Report 10594307 (Version 1)
Quarter: 2014Q4

REPORT INFORMATION
  Report Type: Spontaneous
  Country: US (occurrence: US)
  Receive Date: 20141119
  Receipt Date: 20141119
  Transmission Date: 20150529
  Serious: No
  Sender: FDA-Public Use
  Company Number: US-009507513-1410USA012118

PATIENT
  Sex: Female

DRUGS (2)
  1. GANIRELIX ACETATE INJECTION [Suspect]
     Active Substance: GANIRELIX ACETATE
     Indication: PREVENTION OF PREMATURE OVULATION
     Dosage: 250 MCG/ 0.5/ML
     Route: 058
  2. FOLLISTIM AQ [Concomitant]
     Active Substance: FOLLITROPIN

REACTIONS (1)
  - Blood luteinising hormone increased [Unknown]
